FAERS Safety Report 19294475 (Version 1)
Quarter: 2021Q2

REPORT INFORMATION
  Report Type: Spontaneous
  Country: US (occurrence: US)
  Receive Date: 20210524
  Receipt Date: 20210524
  Transmission Date: 20210717
  Serious: Yes (Other)
  Sender: FDA-Public Use
  Company Number: US-GLAXOSMITHKLINE-US2021GSK110245

PATIENT
  Sex: Female

DRUGS (8)
  1. ZANTAC [Suspect]
     Active Substance: RANITIDINE HYDROCHLORIDE
     Indication: DYSPEPSIA
     Dosage: 25 MG OCCASIONAL
     Route: 065
     Dates: start: 200001, end: 201701
  2. ZANTAC [Suspect]
     Active Substance: RANITIDINE HYDROCHLORIDE
     Dosage: 75 MG OCCASIONAL
     Route: 065
     Dates: start: 200001, end: 201701
  3. RANITIDINE HYDROCHLORIDE. [Suspect]
     Active Substance: RANITIDINE HYDROCHLORIDE
     Indication: DYSPEPSIA
     Dosage: 25 MG OCCASIONAL
     Route: 065
     Dates: start: 200001, end: 201701
  4. RANITIDINE HYDROCHLORIDE. [Suspect]
     Active Substance: RANITIDINE HYDROCHLORIDE
     Dosage: 75 MG OCCASIONAL
     Route: 065
     Dates: start: 200001, end: 201701
  5. RANITIDINE HYDROCHLORIDE. [Suspect]
     Active Substance: RANITIDINE HYDROCHLORIDE
     Indication: DYSPEPSIA
     Dosage: 25 MG OCCASIONAL
     Route: 065
     Dates: start: 200001, end: 201701
  6. RANITIDINE HYDROCHLORIDE. [Suspect]
     Active Substance: RANITIDINE HYDROCHLORIDE
     Dosage: 75 MG OCCASIONAL
     Route: 065
     Dates: start: 200001, end: 201701
  7. ZANTAC [Suspect]
     Active Substance: RANITIDINE HYDROCHLORIDE
     Indication: DYSPEPSIA
     Dosage: 25 MG OCCASIONAL
     Route: 065
     Dates: start: 200001, end: 201701
  8. ZANTAC [Suspect]
     Active Substance: RANITIDINE HYDROCHLORIDE
     Dosage: 75 MG OCCASIONAL
     Route: 065
     Dates: start: 200001, end: 201701

REACTIONS (1)
  - Breast cancer [Unknown]
